FAERS Safety Report 10181488 (Version 1)
Quarter: 2014Q2

REPORT INFORMATION
  Report Type: Spontaneous
  Country: US (occurrence: US)
  Receive Date: 20140519
  Receipt Date: 20140519
  Transmission Date: 20141212
  Serious: Yes (Hospitalization)
  Sender: FDA-Public Use
  Company Number: US-GLAXOSMITHKLINE-A1072795A

PATIENT
  Age: 75 Year
  Sex: Male

DRUGS (20)
  1. BREO ELLIPTA [Suspect]
     Indication: ASTHMA
     Dosage: 1PUFF PER DAY
     Route: 055
     Dates: start: 20140508
  2. FLOVENT [Suspect]
     Indication: ASTHMA
     Dosage: 1PUFF TWICE PER DAY
     Route: 055
  3. VENTOLIN [Suspect]
     Indication: ASTHMA
     Dosage: 2PUFF AS REQUIRED
     Route: 055
  4. NASONEX [Concomitant]
  5. EFFEXOR [Concomitant]
     Dosage: 75MG PER DAY
  6. EFFEXOR [Concomitant]
     Dosage: 150MG PER DAY
  7. POTASSIUM [Concomitant]
     Dosage: 10MEQ TWICE PER DAY
  8. IRON [Concomitant]
     Dosage: 325MG PER DAY
  9. NEXIUM [Concomitant]
     Dosage: 40MG PER DAY
  10. FUROSEMIDE [Concomitant]
  11. CARDURA [Concomitant]
     Dosage: 2MG PER DAY
  12. CLARITIN [Concomitant]
     Dosage: 10MG PER DAY
  13. COLCHICINE [Concomitant]
     Dosage: .6MG TWICE PER DAY
  14. SIMVASTATIN [Concomitant]
     Dosage: 20MG PER DAY
  15. ZEBETA [Concomitant]
     Dosage: 2.5MG PER DAY
  16. DETROL [Concomitant]
     Dosage: 4MG PER DAY
  17. COZAAR [Concomitant]
     Dosage: 25MG PER DAY
  18. MOTRIN [Concomitant]
     Dosage: 800MG AS REQUIRED
  19. GLIPIZIDE [Concomitant]
     Dosage: 5MG PER DAY
  20. PROAIR HFA [Concomitant]

REACTIONS (5)
  - Hip arthroplasty [Unknown]
  - Dyspnoea [Not Recovered/Not Resolved]
  - Expired product administered [Unknown]
  - Fatigue [Not Recovered/Not Resolved]
  - Anxiety [Unknown]
